FAERS Safety Report 7701288-1 (Version None)
Quarter: 2011Q3

REPORT INFORMATION
  Report Type: 
  Country: None (occurrence: None)
  Receive Date: 20110822
  Receipt Date: 20100904
  Transmission Date: 20111222
  Serious: No
  Sender: FDA-Public Use
  Company Number: US-BRISTOL-MYERS SQUIBB COMPANY-15276744

PATIENT

DRUGS (1)
  1. MAXIPIME [Suspect]
     Dosage: 1G BAG 10 JAPAN

REACTIONS (1)
  - DEVICE LEAKAGE [None]
